FAERS Safety Report 19275365 (Version 1)
Quarter: 2021Q2

REPORT INFORMATION
  Report Type: Spontaneous
  Country: US (occurrence: US)
  Receive Date: 20210519
  Receipt Date: 20210519
  Transmission Date: 20210717
  Serious: No
  Sender: FDA-Public Use
  Company Number: US-SA-2021SA160184

PATIENT
  Age: 69 Year
  Sex: Female

DRUGS (2)
  1. LEFLUNOMIDE WINTHROP [Suspect]
     Active Substance: LEFLUNOMIDE
     Dosage: 20 MG, QD,
     Route: 065
     Dates: start: 202103
  2. AMOXICILLIN. [Concomitant]
     Active Substance: AMOXICILLIN
     Dosage: UNK
     Route: 065

REACTIONS (2)
  - Hypersensitivity [Not Recovered/Not Resolved]
  - Rash [Not Recovered/Not Resolved]
